FAERS Safety Report 13468376 (Version 1)
Quarter: 2017Q2

REPORT INFORMATION
  Report Type: Spontaneous
  Country: US (occurrence: US)
  Receive Date: 20170421
  Receipt Date: 20170421
  Transmission Date: 20170830
  Serious: Yes (Hospitalization)
  Sender: FDA-Public Use
  Company Number: US-NAPPMUNDI-USA-2017-0136864

PATIENT
  Age: 20 Year
  Sex: Male
  Weight: 140.14 kg

DRUGS (2)
  1. OXYCONTIN [Suspect]
     Active Substance: OXYCODONE HYDROCHLORIDE
     Indication: ILL-DEFINED DISORDER
     Dosage: 2 DF, UNK
     Route: 048
     Dates: start: 20170222
  2. OXYCONTIN [Suspect]
     Active Substance: OXYCODONE HYDROCHLORIDE
     Dosage: UNK
     Route: 048

REACTIONS (8)
  - Glassy eyes [Unknown]
  - Pupillary light reflex tests abnormal [Unknown]
  - Mydriasis [Unknown]
  - Restlessness [Unknown]
  - Adverse drug reaction [Unknown]
  - Ocular hyperaemia [Unknown]
  - Incoherent [Unknown]
  - Gait disturbance [Unknown]

NARRATIVE: CASE EVENT DATE: 20170222
